FAERS Safety Report 13051844 (Version 1)
Quarter: 2016Q4

REPORT INFORMATION
  Report Type: Spontaneous
  Country: US (occurrence: US)
  Receive Date: 20161221
  Receipt Date: 20161221
  Transmission Date: 20170207
  Serious: Yes (Other)
  Sender: FDA-Public Use
  Company Number: US-CELGENEUS-USA-2016125061

PATIENT
  Sex: Female
  Weight: 53.57 kg

DRUGS (1)
  1. OTEZLA [Suspect]
     Active Substance: APREMILAST
     Indication: PSORIASIS
     Dosage: STARTER KIT
     Route: 048
     Dates: start: 201611

REACTIONS (2)
  - Diarrhoea [Unknown]
  - Vomiting [Unknown]
